FAERS Safety Report 7087315-6 (Version None)
Quarter: 2010Q4

REPORT INFORMATION
  Report Type: 
  Country: None (occurrence: None)
  Receive Date: 20101108
  Receipt Date: 20101027
  Transmission Date: 20110411
  Serious: Yes (Life-Threatening, Other)
  Sender: FDA-Public Use
  Company Number: US-ELI_LILLY_AND_COMPANY-US201009004140

PATIENT
  Sex: Male
  Weight: 81.361 kg

DRUGS (11)
  1. PEMETREXED [Suspect]
     Indication: NON-SMALL CELL LUNG CANCER STAGE IV
     Dosage: 500 MG/M2, ON DAY 1 EVERY 21 DAYS
     Route: 042
     Dates: start: 20100324, end: 20100609
  2. PEMETREXED [Suspect]
     Dosage: 281.3 MG/M2, ON DAY 1 EVERY 21 DAYS
     Route: 042
     Dates: start: 20100714
  3. CARBOPLATIN [Suspect]
     Indication: NON-SMALL CELL LUNG CANCER STAGE IV
     Dosage: 6 AUC, ON DAY 1 EVERY 21 DAYS
     Route: 042
     Dates: start: 20100324, end: 20100609
  4. BEVACIZUMAB [Suspect]
     Indication: NON-SMALL CELL LUNG CANCER STAGE IV
     Dosage: 15 MG/KG, ON DAY ONE EVERY 21 DAYS
     Route: 042
     Dates: start: 20100324, end: 20100609
  5. BEVACIZUMAB [Suspect]
     Dosage: 15 MG/M2, OTHER (DAY ONE EVERY 21 DAYS)
     Route: 042
     Dates: start: 20100714, end: 20100804
  6. FOLIC ACID [Concomitant]
     Dosage: UNK, UNK
     Dates: start: 20100324, end: 20100324
  7. FOLIC ACID [Concomitant]
     Dates: start: 20100505, end: 20100804
  8. CYANOCOBALAMIN [Concomitant]
     Dates: start: 20100317, end: 20100714
  9. ANZEMET [Concomitant]
     Dates: start: 20100324, end: 20100825
  10. LORTAB [Concomitant]
     Dates: start: 20100331, end: 20100825
  11. EMLA [Concomitant]
     Dates: start: 20100317

REACTIONS (1)
  - PULMONARY EMBOLISM [None]
